FAERS Safety Report 20499919 (Version 3)
Quarter: 2022Q1

REPORT INFORMATION
  Report Type: Report from Study
  Country: CN (occurrence: None)
  Receive Date: 20220222
  Receipt Date: 20220318
  Transmission Date: 20220423
  Serious: Yes (Hospitalization)
  Sender: FDA-Public Use
  Company Number: CN-ROCHE-3025922

PATIENT
  Age: 68 Year
  Sex: Male
  Weight: 59 kg

DRUGS (9)
  1. PLACEBO [Suspect]
     Active Substance: UNSPECIFIED INGREDIENT
     Indication: Non-small cell lung cancer stage IV
     Dosage: ON 28/JAN/2022, LAST DOSE WAS ADMINISTERED PRIOR TO AE.
     Route: 042
     Dates: start: 20220107
  2. CARBOPLATIN [Suspect]
     Active Substance: CARBOPLATIN
     Indication: Non-small cell lung cancer stage IV
     Dosage: ON 28/JAN/2022, LAST DOSE OF 603 MG WAS ADMINISTERED PRIOR TO AE.
     Route: 042
     Dates: start: 20220107
  3. BEVACIZUMAB [Suspect]
     Active Substance: BEVACIZUMAB
     Indication: Non-small cell lung cancer stage IV
     Dosage: ON 28/JAN/2022, LAST DOSE WAS ADMINISTERED PRIOR TO AE.
     Route: 042
     Dates: start: 20220107
  4. PEMETREXED [Suspect]
     Active Substance: PEMETREXED
     Indication: Non-small cell lung cancer stage IV
     Dosage: ON 28/JAN/2022, LAST DOSE 815 MG WAS ADMINISTERED PRIOR TO AE.
     Route: 042
     Dates: start: 20220107
  5. OPRELVEKIN [Concomitant]
     Active Substance: OPRELVEKIN
     Dates: start: 20220209, end: 20220209
  6. THROMBOPOIETIN [Concomitant]
     Active Substance: THROMBOPOIETIN
     Dates: start: 20220210
  7. METHYLPREDNISOLONE SODIUM SUCCINATE [Concomitant]
     Active Substance: METHYLPREDNISOLONE SODIUM SUCCINATE
     Route: 042
     Dates: start: 20220213, end: 20220213
  8. METHYLPREDNISOLONE SODIUM SUCCINATE [Concomitant]
     Active Substance: METHYLPREDNISOLONE SODIUM SUCCINATE
     Route: 042
     Dates: start: 20220215, end: 20220220
  9. CEFTAZIDIME [Concomitant]
     Active Substance: CEFTAZIDIME
     Dates: start: 20220213, end: 20220220

REACTIONS (3)
  - Neutrophil count decreased [Recovered/Resolved]
  - Immune-mediated lung disease [Recovering/Resolving]
  - Platelet count decreased [Recovered/Resolved]

NARRATIVE: CASE EVENT DATE: 20220209
